FAERS Safety Report 14827625 (Version 1)
Quarter: 2018Q2

REPORT INFORMATION
  Report Type: Spontaneous
  Country: US (occurrence: US)
  Receive Date: 20180430
  Receipt Date: 20180430
  Transmission Date: 20180711
  Serious: No
  Sender: FDA-Public Use
  Company Number: US-ABBVIE-18K-163-2252889-00

PATIENT
  Age: 47 Year
  Sex: Male

DRUGS (5)
  1. SYNTHROID [Concomitant]
     Active Substance: LEVOTHYROXINE SODIUM
     Indication: PRODUCT USED FOR UNKNOWN INDICATION
  2. HYDROCORTISONE. [Concomitant]
     Active Substance: HYDROCORTISONE
     Indication: CUSHING^S SYNDROME
  3. ANDROGEL [Suspect]
     Active Substance: TESTOSTERONE
     Indication: HYPOGONADISM
     Dosage: 2 PUMPS DAILY
     Route: 061
     Dates: start: 2011, end: 201712
  4. ANDROGEL [Suspect]
     Active Substance: TESTOSTERONE
     Dosage: 4 PUMPS DAILY
     Route: 061
     Dates: start: 201712
  5. DESMOPRESSIN ACETATE. [Suspect]
     Active Substance: DESMOPRESSIN ACETATE
     Indication: CUSHING^S SYNDROME
     Route: 065

REACTIONS (3)
  - Blood sodium decreased [Recovered/Resolved]
  - Headache [Not Recovered/Not Resolved]
  - Blood testosterone decreased [Recovering/Resolving]

NARRATIVE: CASE EVENT DATE: 201309
